FAERS Safety Report 9240736 (Version 1)
Quarter: 2013Q1

REPORT INFORMATION
  Report Type: Spontaneous
  Country: US (occurrence: None)
  Receive Date: 20121120
  Receipt Date: 20121120
  Transmission Date: 20140127
  Serious: No
  Sender: FDA-Public Use
  Company Number: 1000038922

PATIENT
  Age: 56 Year
  Sex: Female

DRUGS (3)
  1. VIIBRYD (VILAZODONE HYDROCHLORIDE) [Suspect]
     Dates: start: 201208, end: 201208
  2. SYNTHROID (LEVOTHYROXINE) [Concomitant]
  3. SEROQUEL (QUETIAPINE FUMURATE) [Concomitant]

REACTIONS (3)
  - Anxiety [None]
  - Aggression [None]
  - Insomnia [None]
